FAERS Safety Report 9157151 (Version 1)
Quarter: 2013Q1

REPORT INFORMATION
  Report Type: Spontaneous
  Country: US (occurrence: None)
  Receive Date: 20130211
  Receipt Date: 20130211
  Transmission Date: 20140127
  Serious: Yes (Other)
  Sender: FDA-Public Use
  Company Number: 2013SUN00078

PATIENT
  Age: 59 Year
  Sex: Female

DRUGS (1)
  1. METFORMIN HCL [Suspect]
     Indication: TYPE 2 DIABETES MELLITUS
     Dosage: 500 MG, SINGLE

REACTIONS (4)
  - Pancreatitis chronic [None]
  - Condition aggravated [None]
  - Nausea [None]
  - Hypophagia [None]
